FAERS Safety Report 8774675 (Version 2)
Quarter: 2012Q4

REPORT INFORMATION
  Report Type: 
  Country: CA (occurrence: CA)
  Receive Date: 20120910
  Receipt Date: 20121012
  Transmission Date: 20130627
  Serious: Yes (Hospitalization)
  Sender: FDA-Public Use
  Company Number: CA-VERTEX PHARMACEUTICAL INC.-2012-020705

PATIENT
  Sex: Male

DRUGS (3)
  1. INCIVEK [Suspect]
     Indication: HEPATITIS C
     Dosage: UNK
     Route: 048
  2. RIBAVIRIN [Concomitant]
     Indication: HEPATITIS C
     Dosage: 800 mg, UNK
  3. INTERFERON [Concomitant]
     Indication: HEPATITIS C
     Dosage: half dose

REACTIONS (3)
  - Hepatic cirrhosis [Unknown]
  - Pyrexia [Recovered/Resolved]
  - Treatment noncompliance [Unknown]
